FAERS Safety Report 5416055-1 (Version None)
Quarter: 2007Q3

REPORT INFORMATION
  Report Type: 
  Country: None (occurrence: None)
  Receive Date: 20070815
  Receipt Date: 20070322
  Transmission Date: 20080115
  Serious: Yes (Hospitalization)
  Sender: FDA-Public Use
  Company Number: NZ-MERCK-0702NZL00015

PATIENT
  Age: 72 Year
  Sex: Male

DRUGS (13)
  1. ZOCOR [Suspect]
     Indication: MYOCARDIAL ISCHAEMIA
     Route: 048
     Dates: start: 20050101, end: 20070101
  2. ZOCOR [Suspect]
     Route: 048
     Dates: start: 20070201
  3. FOLIC ACID [Concomitant]
     Indication: MYOCARDIAL ISCHAEMIA
     Route: 048
     Dates: start: 20070101
  4. COLCHICINE [Concomitant]
     Indication: GOUT
     Route: 048
     Dates: start: 20050101
  5. CANDESARTAN CILEXETIL [Concomitant]
     Indication: CARDIAC FAILURE CONGESTIVE
     Route: 048
     Dates: start: 20050101
  6. ALLOPURINOL [Concomitant]
     Indication: GOUT
     Route: 048
     Dates: start: 20060101
  7. ALUMINUM HYDROXIDE AND MAGNESIUM HYDROXIDE AND SIMETHICONE [Concomitant]
     Indication: DYSPEPSIA
     Route: 065
  8. FUROSEMIDE [Concomitant]
     Indication: CARDIAC FAILURE CONGESTIVE
     Route: 048
  9. EPOETIN BETA [Concomitant]
     Indication: RENAL FAILURE CHRONIC
     Route: 058
  10. QUININE SULFATE [Concomitant]
     Indication: MUSCLE SPASMS
     Route: 048
  11. CARVEDILOL [Concomitant]
     Indication: CARDIAC FAILURE CONGESTIVE
     Route: 065
     Dates: start: 20060101
  12. ROXITHROMYCIN [Suspect]
     Indication: PNEUMONIA
     Route: 048
     Dates: start: 20061222, end: 20070303
  13. CLARITHROMYCIN [Suspect]
     Indication: PNEUMONIA
     Route: 041
     Dates: start: 20070103

REACTIONS (5)
  - DRUG INTERACTION [None]
  - GASTRIC ULCER [None]
  - INFLUENZA [None]
  - PNEUMONIA [None]
  - RHABDOMYOLYSIS [None]
